FAERS Safety Report 17006859 (Version 1)
Quarter: 2019Q4

REPORT INFORMATION
  Report Type: Spontaneous
  Country: US (occurrence: US)
  Receive Date: 20191106
  Receipt Date: 20191106
  Transmission Date: 20200122
  Serious: Yes (Disabling, Other)
  Sender: FDA-Public Use
  Company Number: None

PATIENT
  Age: 43 Year
  Sex: Female
  Weight: 72 kg

DRUGS (5)
  1. BUTRANS 5 MCG/HOUR [Concomitant]
  2. ZANAFLEX 6 MG/NIGHTLY [Concomitant]
  3. BUPRENORHPINE TRANSDERMAL SYSTEM 5MCG/HOUR [Suspect]
     Active Substance: BUPRENORPHINE
     Indication: SPINAL DISORDER
     Dosage: ?          OTHER STRENGTH:5 MCG/HOUR;QUANTITY:4 PATCH(ES);OTHER FREQUENCY:ONE PER WEEK;?
     Route: 062
     Dates: start: 20190723, end: 20191017
  4. METAXALONE 800MG [Concomitant]
  5. HYDROCODONE [Concomitant]
     Active Substance: HYDROCODONE

REACTIONS (3)
  - Drug withdrawal syndrome [None]
  - Product quality issue [None]
  - Product substitution issue [None]

NARRATIVE: CASE EVENT DATE: 20191014
